FAERS Safety Report 24440178 (Version 3)
Quarter: 2025Q3

REPORT INFORMATION
  Report Type: Report from Study
  Country: JP (occurrence: JP)
  Receive Date: 20241016
  Receipt Date: 20250810
  Transmission Date: 20251020
  Serious: Yes (Hospitalization, Other)
  Sender: ALEXION PHARMACEUTICALS
  Company Number: JP-ASTRAZENECA-240023114_032320_P_1

PATIENT
  Age: 38 Year
  Sex: Female
  Weight: 53 kg

DRUGS (11)
  1. SAPHNELO [Suspect]
     Active Substance: ANIFROLUMAB-FNIA
     Indication: Systemic lupus erythematosus
     Dosage: 300 MILLIGRAM, Q4W
     Dates: start: 20230914, end: 20240208
  2. SAPHNELO [Suspect]
     Active Substance: ANIFROLUMAB-FNIA
     Dosage: 300 MILLIGRAM, Q4W
     Dates: start: 20240516
  3. PREDONINE [Suspect]
     Active Substance: PREDNISOLONE
  4. PREDONINE [Suspect]
     Active Substance: PREDNISOLONE
     Dates: start: 20240208, end: 20240221
  5. PREDONINE [Suspect]
     Active Substance: PREDNISOLONE
     Dates: start: 20240222, end: 20240807
  6. PREDONINE [Suspect]
     Active Substance: PREDNISOLONE
  7. PLAQUENIL [Concomitant]
     Active Substance: HYDROXYCHLOROQUINE SULFATE
     Indication: Systemic lupus erythematosus
  8. CELLCEPT [Concomitant]
     Active Substance: MYCOPHENOLATE MOFETIL
     Indication: Systemic lupus erythematosus
  9. VONOPRAZAN FUMARATE [Concomitant]
     Active Substance: VONOPRAZAN FUMARATE
     Indication: Prophylaxis
  10. ALFAROL [Concomitant]
     Active Substance: ALFACALCIDOL
     Indication: Prophylaxis
  11. SULFAMETHOXAZOLE\TRIMETHOPRIM [Concomitant]
     Active Substance: SULFAMETHOXAZOLE\TRIMETHOPRIM
     Indication: Prophylaxis

REACTIONS (2)
  - Varicella [Recovering/Resolving]
  - Necrotising herpetic retinopathy [Recovering/Resolving]

NARRATIVE: CASE EVENT DATE: 20240217
